FAERS Safety Report 11754903 (Version 1)
Quarter: 2015Q4

REPORT INFORMATION
  Report Type: Spontaneous
  Country: CH (occurrence: CH)
  Receive Date: 20151119
  Receipt Date: 20151119
  Transmission Date: 20160304
  Serious: Yes (Hospitalization)
  Sender: FDA-Public Use
  Company Number: CH-ASTRAZENECA-2015SF10016

PATIENT
  Age: 27805 Day
  Sex: Female

DRUGS (9)
  1. CITALOPRAM [Interacting]
     Active Substance: CITALOPRAM HYDROBROMIDE
     Route: 048
     Dates: start: 2014, end: 20151009
  2. TEMESTA [Concomitant]
     Active Substance: LORAZEPAM
     Dosage: 1 MG THREE TIMES AND 0.5 MG THREE TIMES IN RESERVE
     Route: 048
     Dates: start: 20151011
  3. SEROQUEL [Concomitant]
     Active Substance: QUETIAPINE FUMARATE
     Dosage: 75 MG AT MORNING, 25 MG AT MIDDAY, 50 MG EVENINGS
     Route: 048
     Dates: start: 2014, end: 20151008
  4. SEROQUEL [Concomitant]
     Active Substance: QUETIAPINE FUMARATE
     Route: 048
     Dates: end: 20151009
  5. TEMESTA [Concomitant]
     Active Substance: LORAZEPAM
     Dosage: 1 MG AT MORNING AND EVENING, 0.5 MG AT 2 PM AND 2AM
     Route: 048
     Dates: end: 20151007
  6. CITALOPRAM [Interacting]
     Active Substance: CITALOPRAM HYDROBROMIDE
     Route: 048
     Dates: end: 2014
  7. DORMICUM [Concomitant]
     Active Substance: MIDAZOLAM\MIDAZOLAM HYDROCHLORIDE
     Route: 048
     Dates: start: 2014, end: 20151009
  8. NEXIUM [Suspect]
     Active Substance: ESOMEPRAZOLE MAGNESIUM
     Route: 048
  9. TEMESTA [Concomitant]
     Active Substance: LORAZEPAM
     Route: 048
     Dates: start: 20151008, end: 20151010

REACTIONS (21)
  - Hypertension [Recovered/Resolved]
  - Leukocytosis [Unknown]
  - Aggression [Unknown]
  - Blood creatine phosphokinase increased [Recovering/Resolving]
  - Neuroleptic malignant syndrome [Unknown]
  - Drug interaction [Unknown]
  - Serotonin syndrome [Recovered/Resolved]
  - Mydriasis [Recovered/Resolved]
  - Muscle rigidity [Recovered/Resolved]
  - Labile blood pressure [Unknown]
  - C-reactive protein increased [Unknown]
  - Agitation [Recovered/Resolved]
  - Vomiting [Recovered/Resolved]
  - Diarrhoea [Recovered/Resolved]
  - Hyperreflexia [Unknown]
  - Impulsive behaviour [Unknown]
  - Dementia [Unknown]
  - Tachycardia [Recovered/Resolved]
  - Generalised erythema [Recovered/Resolved]
  - Tremor [Unknown]
  - Pyrexia [Unknown]

NARRATIVE: CASE EVENT DATE: 20151009
